FAERS Safety Report 8591939-4 (Version None)
Quarter: 2012Q3

REPORT INFORMATION
  Report Type: 
  Country: None (occurrence: None)
  Receive Date: 20120814
  Receipt Date: 20120808
  Transmission Date: 20120928
  Serious: Yes (Hospitalization)
  Sender: FDA-Public Use
  Company Number: BR-PFIZER INC-2012194232

PATIENT
  Age: 47 Year
  Sex: Female
  Weight: 72 kg

DRUGS (1)
  1. CELEBREX [Suspect]
     Indication: PAIN
     Dosage: 200 MG, 1X/DAY AT NIGHT
     Route: 048
     Dates: start: 20090101

REACTIONS (4)
  - OSTEOARTHRITIS [None]
  - PRODUCT COUNTERFEIT [None]
  - PAIN [None]
  - DRUG INEFFECTIVE [None]
